FAERS Safety Report 5497701-3 (Version None)
Quarter: 2007Q4

REPORT INFORMATION
  Report Type: 
  Country: None (occurrence: None)
  Receive Date: 20071025
  Receipt Date: 20070425
  Transmission Date: 20080405
  Serious: No
  Sender: FDA-Public Use
  Company Number: A0639031A

PATIENT
  Age: 63 Year
  Sex: Male

DRUGS (8)
  1. ADVAIR DISKUS 100/50 [Suspect]
     Dosage: 1PUFF TWICE PER DAY
     Route: 055
     Dates: start: 20061101, end: 20070101
  2. AVANDAMET [Concomitant]
  3. FOSINOPRIL SODIUM [Concomitant]
  4. TOPROL-XL [Concomitant]
  5. GLIPIZIDE [Concomitant]
  6. VYTORIN [Concomitant]
  7. CARISOPRODOL [Concomitant]
  8. ASPIRIN [Concomitant]

REACTIONS (3)
  - DIZZINESS [None]
  - FEELING ABNORMAL [None]
  - PHARMACEUTICAL PRODUCT COMPLAINT [None]
